FAERS Safety Report 12203227 (Version 5)
Quarter: 2016Q2

REPORT INFORMATION
  Report Type: Report from Study
  Country: CA (occurrence: CA)
  Receive Date: 20160323
  Receipt Date: 20160422
  Transmission Date: 20160815
  Serious: Yes (Hospitalization, Other)
  Sender: FDA-Public Use
  Company Number: CA-ROCHE-1636391

PATIENT
  Age: 70 Year
  Sex: Female

DRUGS (5)
  1. PREDNISONE. [Concomitant]
     Active Substance: PREDNISONE
  2. TYLENOL [Concomitant]
     Active Substance: ACETAMINOPHEN
  3. ACTEMRA [Suspect]
     Active Substance: TOCILIZUMAB
     Indication: POLYMYALGIA RHEUMATICA
     Route: 042
     Dates: start: 20150302
  4. CELLCEPT [Suspect]
     Active Substance: MYCOPHENOLATE MOFETIL\MYCOPHENOLATE MOFETIL HYDROCHLORIDE
     Indication: PRODUCT USED FOR UNKNOWN INDICATION
     Route: 065
  5. ACTEMRA [Suspect]
     Active Substance: TOCILIZUMAB
     Indication: VASCULITIS
     Route: 042
     Dates: start: 20140929

REACTIONS (9)
  - Acute kidney injury [Unknown]
  - Drug hypersensitivity [Unknown]
  - Weight decreased [Not Recovered/Not Resolved]
  - Clostridium difficile infection [Unknown]
  - Renal pain [Not Recovered/Not Resolved]
  - Escherichia urinary tract infection [Unknown]
  - Sepsis [Unknown]
  - Off label use [Unknown]
  - Pyelonephritis [Unknown]

NARRATIVE: CASE EVENT DATE: 2016
